FAERS Safety Report 17214965 (Version 1)
Quarter: 2019Q4

REPORT INFORMATION
  Report Type: Spontaneous
  Country: IT (occurrence: IT)
  Receive Date: 20191230
  Receipt Date: 20191230
  Transmission Date: 20200122
  Serious: Yes (Other)
  Sender: FDA-Public Use
  Company Number: IT-MYLANLABS-2019M1128585

PATIENT
  Age: 60 Year
  Sex: Female

DRUGS (1)
  1. KETOPROFEN. [Suspect]
     Active Substance: KETOPROFEN
     Indication: HEADACHE
     Dosage: 1 DOSAGE FORM, QD
     Route: 048
     Dates: start: 20190903, end: 20190903

REACTIONS (3)
  - Periorbital oedema [Recovering/Resolving]
  - Throat tightness [Recovering/Resolving]
  - Erythema [Recovering/Resolving]

NARRATIVE: CASE EVENT DATE: 20190903
